FAERS Safety Report 16513936 (Version 1)
Quarter: 2019Q3

REPORT INFORMATION
  Report Type: Spontaneous
  Country: US (occurrence: US)
  Receive Date: 20190701
  Receipt Date: 20190701
  Transmission Date: 20191004
  Serious: No
  Sender: FDA-Public Use
  Company Number: US-ROCHE-2280330

PATIENT
  Sex: Female
  Weight: 46.3 kg

DRUGS (19)
  1. KLONOPIN [Suspect]
     Active Substance: CLONAZEPAM
     Indication: PRODUCT USED FOR UNKNOWN INDICATION
     Route: 048
     Dates: start: 201901
  2. GLYCOPYRROLATE [GLYCOPYRRONIUM BROMIDE] [Concomitant]
     Route: 065
     Dates: end: 201901
  3. QUETIAPINE FUMARATE. [Concomitant]
     Active Substance: QUETIAPINE FUMARATE
     Route: 065
  4. LEVODOPA [Concomitant]
     Active Substance: LEVODOPA
     Route: 065
  5. AMANTADINE. [Suspect]
     Active Substance: AMANTADINE HYDROCHLORIDE
     Dosage: DAILY AT BEDTIME
     Route: 048
  6. AZELASTINE HYDROCHLORIDE. [Concomitant]
     Active Substance: AZELASTINE HYDROCHLORIDE
     Indication: DYSKINESIA
     Route: 045
  7. CYPROHEPTADINE HYDROCHLORIDE. [Concomitant]
     Active Substance: CYPROHEPTADINE HYDROCHLORIDE
  8. AMANTADINE. [Suspect]
     Active Substance: AMANTADINE HYDROCHLORIDE
     Indication: DYSKINESIA
     Route: 048
     Dates: start: 20180914
  9. LORATADINE. [Concomitant]
     Active Substance: LORATADINE
  10. IBUPROFEN. [Concomitant]
     Active Substance: IBUPROFEN
  11. CIPROFLOXACIN. [Concomitant]
     Active Substance: CIPROFLOXACIN
  12. NITROFURANTOIN. [Concomitant]
     Active Substance: NITROFURANTOIN
  13. CARBIDOPA. [Concomitant]
     Active Substance: CARBIDOPA
     Route: 065
  14. TEMAZEPAM. [Concomitant]
     Active Substance: TEMAZEPAM
     Route: 065
     Dates: end: 201901
  15. AMANTADINE. [Suspect]
     Active Substance: AMANTADINE HYDROCHLORIDE
     Dosage: AT BEDTIME
     Route: 048
  16. TRIAZOLAM. [Concomitant]
     Active Substance: TRIAZOLAM
  17. AMOXICILLIN. [Concomitant]
     Active Substance: AMOXICILLIN
  18. ASPIRIN [ACETYLSALICYLIC ACID] [Concomitant]
     Active Substance: ASPIRIN
  19. ZOLPIDEM TARTRATE. [Concomitant]
     Active Substance: ZOLPIDEM TARTRATE
     Route: 065

REACTIONS (4)
  - Urinary tract infection [Unknown]
  - Chromaturia [Recovering/Resolving]
  - Drug ineffective [Unknown]
  - Initial insomnia [Not Recovered/Not Resolved]
